FAERS Safety Report 16663728 (Version 4)
Quarter: 2019Q4

REPORT INFORMATION
  Report Type: Report from Study
  Country: US (occurrence: US)
  Receive Date: 20190802
  Receipt Date: 20191223
  Transmission Date: 20200122
  Serious: Yes (Hospitalization)
  Sender: FDA-Public Use
  Company Number: US-GILEAD-2019-0418716

PATIENT
  Age: 78 Year
  Sex: Female
  Weight: 89.9 kg

DRUGS (75)
  1. TRAMADOL. [Concomitant]
     Active Substance: TRAMADOL
     Dosage: 50,MG,AS NECESSARY
     Route: 048
     Dates: start: 20190809
  2. PROCHLORPERAZINE. [Concomitant]
     Active Substance: PROCHLORPERAZINE
     Dosage: 5-10,MG,AS NECESSARY
     Route: 048
     Dates: start: 20190625
  3. ALLOPURINOL. [Concomitant]
     Active Substance: ALLOPURINOL
     Dosage: 300,MG,DAILY
     Route: 048
     Dates: start: 20190701, end: 20190715
  4. MELATONIN [Concomitant]
     Active Substance: MELATONIN
     Dosage: 3,MG,DAILY
     Route: 048
     Dates: start: 20190709, end: 20190716
  5. CLOTRIMAZOLE. [Concomitant]
     Active Substance: CLOTRIMAZOLE
     Dosage: 10,MG,AS NECESSARY
     Route: 048
     Dates: start: 20190714, end: 20190719
  6. SODIUM CHLORIDE 0.9% [Concomitant]
     Active Substance: SODIUM CHLORIDE
     Dosage: 125,OTHER,DAILY
     Route: 041
     Dates: start: 20190715, end: 20190716
  7. SODIUM CHLORIDE 0.9% [Concomitant]
     Active Substance: SODIUM CHLORIDE
     Dosage: 75,OTHER,DAILY
     Route: 041
     Dates: start: 20190718, end: 20190718
  8. ATORVASTATIN [Concomitant]
     Active Substance: ATORVASTATIN
     Dosage: 80,MG,DAILY
     Route: 048
     Dates: start: 20190715, end: 20190801
  9. NITROGLYCERIN. [Concomitant]
     Active Substance: NITROGLYCERIN
     Dosage: 0.3,MG,DAILY
     Route: 048
     Dates: start: 20190715, end: 20190715
  10. HYDRALAZINE [Concomitant]
     Active Substance: HYDRALAZINE HYDROCHLORIDE
     Dosage: 5,MG,DAILY
     Route: 041
     Dates: start: 20190715, end: 20190715
  11. AXICABTAGENE CILOLEUCEL [Suspect]
     Active Substance: AXICABTAGENE CILOLEUCEL
     Indication: NON-HODGKIN^S LYMPHOMA
     Dosage: UNK
     Route: 042
     Dates: start: 20190701, end: 20190701
  12. HYDROCHLOROTHIAZIDE. [Concomitant]
     Active Substance: HYDROCHLOROTHIAZIDE
     Dosage: 25,MG,DAILY
     Route: 048
     Dates: start: 20180308
  13. NYSTATIN. [Concomitant]
     Active Substance: NYSTATIN
     Dosage: 5,ML,DAILY
     Route: 048
     Dates: start: 20190630, end: 20190630
  14. DIPHENHYDRAMINE. [Concomitant]
     Active Substance: DIPHENHYDRAMINE
     Dosage: 25,MG,DAILY
     Route: 048
     Dates: start: 20190701, end: 20190701
  15. ACETAMINOPHEN. [Concomitant]
     Active Substance: ACETAMINOPHEN
     Dosage: 650,MG,AS NECESSARY
     Route: 048
     Dates: start: 20190702, end: 20190702
  16. ACETAMINOPHEN. [Concomitant]
     Active Substance: ACETAMINOPHEN
     Dosage: 975,MG,DAILY
     Route: 048
     Dates: start: 20190709, end: 20190709
  17. ACETAMINOPHEN. [Concomitant]
     Active Substance: ACETAMINOPHEN
     Dosage: 650,MG,DAILY
     Route: 048
     Dates: start: 20190731, end: 20190731
  18. BENZONATATE. [Concomitant]
     Active Substance: BENZONATATE
     Dosage: 100-200,MG,AS NECESSARY
     Route: 048
     Dates: start: 20190702, end: 20190730
  19. TOCILIZUMAB. [Concomitant]
     Active Substance: TOCILIZUMAB
     Dosage: 726,MG,DAILY
     Route: 041
     Dates: start: 20190708, end: 20190708
  20. FAMOTIDINE. [Concomitant]
     Active Substance: FAMOTIDINE
     Dosage: 20,MG,TWICE DAILY
     Route: 048
     Dates: start: 20190707, end: 20190719
  21. FAMOTIDINE. [Concomitant]
     Active Substance: FAMOTIDINE
     Dosage: 20,MG,DAILY
     Route: 041
     Dates: start: 20190708, end: 20190708
  22. MULTIVITAMIN AND MINERAL SUPPLEMENT [Concomitant]
     Active Substance: MINERALS\VITAMINS
     Dosage: 100-350-5,OTHER,DAILY
     Route: 048
     Dates: start: 20190731, end: 20190801
  23. MESNA. [Suspect]
     Active Substance: MESNA
     Indication: PROPHYLAXIS
     Dosage: 125
     Route: 042
     Dates: start: 20190626, end: 20190628
  24. FLUDARABINE [Suspect]
     Active Substance: FLUDARABINE PHOSPHATE
     Indication: BONE MARROW CONDITIONING REGIMEN
     Dosage: 30
     Route: 042
     Dates: start: 20190626, end: 20190628
  25. TRAMADOL. [Concomitant]
     Active Substance: TRAMADOL
     Dosage: 50,MG,AS NECESSARY
     Route: 048
     Dates: start: 20190530, end: 20190804
  26. POTASSIUM CHLORIDE. [Concomitant]
     Active Substance: POTASSIUM CHLORIDE
     Dosage: 20,OTHER,AS NECESSARY
     Route: 048
     Dates: start: 20190710, end: 20190712
  27. ONDANSETRON [Concomitant]
     Active Substance: ONDANSETRON
     Dosage: 8,MG,AS NECESSARY
     Route: 048
     Dates: start: 20190701, end: 20190706
  28. DOCUSATE SODIUM. [Concomitant]
     Active Substance: DOCUSATE SODIUM
     Dosage: 100,MG,AS NECESSARY
     Route: 048
     Dates: start: 20190701, end: 20190731
  29. MAGNESIUM OXIDE. [Concomitant]
     Active Substance: MAGNESIUM OXIDE
     Dosage: 400-800,MG,AS NECESSARY
     Route: 048
     Dates: start: 20190702, end: 20190801
  30. RBC [Concomitant]
     Active Substance: HUMAN RED BLOOD CELL
     Dosage: UNKNOWN,ML,DAILY
     Route: 041
     Dates: start: 20190715, end: 20190715
  31. IPRATROPIUM BROMIDE AND SALBUTAMOL SULFATE [Concomitant]
     Active Substance: ALBUTEROL SULFATE\IPRATROPIUM BROMIDE
     Dosage: 3,ML,AS NECESSARY
     Route: 055
     Dates: start: 20190707, end: 20190710
  32. CETIRIZINE [Concomitant]
     Active Substance: CETIRIZINE HYDROCHLORIDE
     Dosage: 10,MG,DAILY
     Route: 048
     Dates: start: 20190708, end: 20190708
  33. DOXAZOSIN [Concomitant]
     Active Substance: DOXAZOSIN MESYLATE
     Dosage: 2,MG,DAILY
     Route: 048
     Dates: start: 20010611, end: 20190801
  34. FLUOXETINE [Concomitant]
     Active Substance: FLUOXETINE HYDROCHLORIDE
     Dosage: 40,MG,DAILY
     Route: 048
     Dates: start: 20130828
  35. LORAZEPAM. [Concomitant]
     Active Substance: LORAZEPAM
     Dosage: 0.5-1,MG,AS NECESSARY
     Route: 048
     Dates: start: 20180315
  36. LEVETIRACETAM. [Concomitant]
     Active Substance: LEVETIRACETAM
     Dosage: 750,MG,TWICE DAILY
     Route: 048
     Dates: start: 20190630, end: 20190801
  37. ACETAMINOPHEN. [Concomitant]
     Active Substance: ACETAMINOPHEN
     Dosage: 650,MG,AS NECESSARY
     Route: 048
     Dates: start: 20190704, end: 20190709
  38. METOCLOPRAMIDE HCL [Concomitant]
     Active Substance: METOCLOPRAMIDE HYDROCHLORIDE
     Dosage: 10,MG,DAILY
     Route: 041
     Dates: start: 20190709, end: 20190709
  39. DEXAMETHASONE. [Concomitant]
     Active Substance: DEXAMETHASONE
     Dosage: 10,MG,DAILY
     Route: 041
     Dates: start: 20190708, end: 20190708
  40. CAFFEINE. [Concomitant]
     Active Substance: CAFFEINE
     Dosage: 200,MG,DAILY
     Route: 048
     Dates: start: 20190709, end: 20190709
  41. METOPROLOL TARTRATE. [Concomitant]
     Active Substance: METOPROLOL TARTRATE
     Dosage: 25,MG,TWICE DAILY
     Route: 048
     Dates: start: 20190720
  42. MIDAZOLAM [Concomitant]
     Active Substance: MIDAZOLAM HYDROCHLORIDE
     Dosage: 2.5,MG,DAILY
     Route: 041
     Dates: start: 20190718, end: 20190718
  43. AMITRIPTYLINE [Concomitant]
     Active Substance: AMITRIPTYLINE
     Dosage: 10,MG,DAILY
     Route: 048
     Dates: start: 20190531, end: 20190827
  44. TOCILIZUMAB. [Concomitant]
     Active Substance: TOCILIZUMAB
     Dosage: 714,MG,DAILY
     Route: 041
     Dates: start: 20190705, end: 20190705
  45. LEVOFLOXACIN. [Concomitant]
     Active Substance: LEVOFLOXACIN
     Dosage: 500,MG,DAILY
     Route: 048
     Dates: start: 20190630, end: 20190704
  46. ATOVAQUONE. [Concomitant]
     Active Substance: ATOVAQUONE
     Dosage: 750,MG,TWICE DAILY
     Route: 048
     Dates: start: 20190701, end: 20190708
  47. ACETAMINOPHEN. [Concomitant]
     Active Substance: ACETAMINOPHEN
     Dosage: 650,MG,DAILY
     Route: 048
     Dates: start: 20190701, end: 20190701
  48. ACETAMINOPHEN. [Concomitant]
     Active Substance: ACETAMINOPHEN
     Dosage: 650,MG,DAILY
     Route: 048
     Dates: start: 20190716, end: 20190719
  49. VANCOMYCIN [Concomitant]
     Active Substance: VANCOMYCIN
     Dosage: 1.25,G,TWICE DAILY
     Route: 041
     Dates: start: 20190705, end: 20190707
  50. METOCLOPRAMIDE HCL [Concomitant]
     Active Substance: METOCLOPRAMIDE HYDROCHLORIDE
     Dosage: 10,MG,AS NECESSARY
     Route: 048
     Dates: start: 20190706, end: 20190708
  51. DEXAMETHASONE. [Concomitant]
     Active Substance: DEXAMETHASONE
     Dosage: 10,MG,THREE TIMES DAILY
     Route: 048
     Dates: start: 20190730, end: 20190730
  52. HEPARIN [Concomitant]
     Active Substance: HEPARIN SODIUM
     Dosage: 5000,OTHER,DAILY
     Route: 041
     Dates: start: 20190715, end: 20190715
  53. LIDOCAINE. [Concomitant]
     Active Substance: LIDOCAINE
     Dosage: 8,ML,DAILY
     Route: 058
     Dates: start: 20190718, end: 20190718
  54. INSULIN ASPART [Concomitant]
     Active Substance: INSULIN ASPART
     Dosage: 1-2,OTHER,AS NECESSARY
     Route: 058
     Dates: start: 20190730, end: 20190731
  55. CYCLOPHOSPHAMIDE. [Suspect]
     Active Substance: CYCLOPHOSPHAMIDE
     Indication: BONE MARROW CONDITIONING REGIMEN
     Dosage: 500
     Route: 042
     Dates: start: 20190626, end: 20190628
  56. VALACYCLOVIR [Concomitant]
     Active Substance: VALACYCLOVIR HYDROCHLORIDE
     Dosage: 500,MG,TWICE DAILY
     Route: 048
     Dates: start: 20190131
  57. POTASSIUM CHLORIDE. [Concomitant]
     Active Substance: POTASSIUM CHLORIDE
     Dosage: 20,OTHER,AS NECESSARY
     Route: 041
     Dates: start: 20190630, end: 20190717
  58. POTASSIUM CHLORIDE. [Concomitant]
     Active Substance: POTASSIUM CHLORIDE
     Dosage: 20,OTHER,AS NECESSARY
     Route: 048
     Dates: start: 20190725, end: 20190801
  59. CHLORHEXIDINE [Concomitant]
     Active Substance: CHLORHEXIDINE
     Dosage: 5,ML,DAILY
     Route: 048
     Dates: start: 20190630, end: 20190630
  60. SENNA [SENNOSIDE A+B] [Concomitant]
     Dosage: 1,OTHER,AS NECESSARY
     Route: 048
     Dates: start: 20190701, end: 20190706
  61. GUAIFENESIN. [Concomitant]
     Active Substance: GUAIFENESIN
     Dosage: 200,MG,AS NECESSARY
     Route: 048
     Dates: start: 20190702, end: 20190711
  62. SODIUM CHLORIDE 0.9% [Concomitant]
     Active Substance: SODIUM CHLORIDE
     Dosage: 100,OTHER,DAILY
     Route: 041
     Dates: start: 20190716, end: 20190717
  63. PROCHLORPERAZINE EDISYLATE. [Concomitant]
     Active Substance: PROCHLORPERAZINE EDISYLATE
     Dosage: 5,MG,DAILY
     Route: 041
     Dates: start: 20190715, end: 20190716
  64. ASPIRIN (E.C.) [Concomitant]
     Active Substance: ASPIRIN
     Dosage: 81-324,MG,DAILY
     Route: 048
     Dates: start: 20190715, end: 20190801
  65. RANITIDINE. [Concomitant]
     Active Substance: RANITIDINE
     Dosage: 150,MG,TWICE DAILY
     Route: 048
     Dates: start: 20190827
  66. LOSARTAN. [Concomitant]
     Active Substance: LOSARTAN
     Dosage: 100,MG,DAILY
     Route: 048
     Dates: start: 20130828
  67. MAGNESIUM SULFATE. [Concomitant]
     Active Substance: MAGNESIUM SULFATE
     Dosage: 2,G,AS NECESSARY
     Route: 041
     Dates: start: 20190628, end: 20190718
  68. ENOXAPARIN [Concomitant]
     Active Substance: ENOXAPARIN
     Dosage: 40,MG,AS NECESSARY
     Route: 058
     Dates: start: 20190701, end: 20190714
  69. RBC [Concomitant]
     Active Substance: HUMAN RED BLOOD CELL
     Dosage: 350,ML,DAILY
     Route: 041
     Dates: start: 20190707, end: 20190707
  70. SULFAMETHOXAZOLE AND TRIMETHOPRIM [Concomitant]
     Active Substance: SULFAMETHOXAZOLE\TRIMETHOPRIM
     Dosage: 800-160,MG,DAILY
     Route: 048
     Dates: start: 20190709, end: 20190710
  71. METOPROLOL TARTRATE. [Concomitant]
     Active Substance: METOPROLOL TARTRATE
     Dosage: 12.5,MG,FOUR TIMES DAILY
     Route: 048
     Dates: start: 20190715, end: 20190719
  72. VERAPAMIL [Concomitant]
     Active Substance: VERAPAMIL HYDROCHLORIDE
     Dosage: 5,MG,DAILY
     Route: 050
     Dates: start: 20190718, end: 20190718
  73. FENTANYL. [Concomitant]
     Active Substance: FENTANYL
     Dosage: 100,UG,DAILY
     Route: 041
     Dates: start: 20190718, end: 20190718
  74. CHOLECALCIFEROL [Concomitant]
     Active Substance: CHOLECALCIFEROL
     Dosage: 1000,OTHER,DAILY
     Route: 048
     Dates: start: 20190730, end: 20190801
  75. APIXABAN [Concomitant]
     Active Substance: APIXABAN
     Dosage: 5,MG,TWICE DAILY
     Route: 048
     Dates: start: 20190801

REACTIONS (3)
  - Stress cardiomyopathy [Recovered/Resolved]
  - Cytokine release syndrome [Recovered/Resolved]
  - Ischaemic stroke [Recovered/Resolved]

NARRATIVE: CASE EVENT DATE: 20190715
